FAERS Safety Report 15666174 (Version 2)
Quarter: 2019Q1

REPORT INFORMATION
  Report Type: Report from Study
  Country: FR (occurrence: FR)
  Receive Date: 20181128
  Receipt Date: 20190120
  Transmission Date: 20190417
  Serious: Yes (Other)
  Sender: FDA-Public Use
  Company Number: PHHY2017FR155839

PATIENT
  Age: 69 Year
  Sex: Male
  Weight: 71.4 kg

DRUGS (1)
  1. ZARZIO [Suspect]
     Active Substance: FILGRASTIM
     Indication: NEUTROPENIA
     Dosage: 30 DF (MU), UNK
     Route: 041
     Dates: start: 20160911

REACTIONS (1)
  - Neutropenia [Recovered/Resolved]

NARRATIVE: CASE EVENT DATE: 20161003
